FAERS Safety Report 4892278-5 (Version None)
Quarter: 2006Q1

REPORT INFORMATION
  Report Type: 
  Country: None (occurrence: None)
  Receive Date: 20060125
  Receipt Date: 20060125
  Transmission Date: 20060701
  Serious: Yes (Other)
  Sender: FDA-Public Use
  Company Number: None

PATIENT
  Sex: Female

DRUGS (1)
  1. LEVAQUIN IN DEXTROSE 5% [Suspect]
     Indication: DIVERTICULITIS
     Dosage: 250 MG DAILY IV DRIP
     Route: 041
     Dates: start: 20060123, end: 20060124

REACTIONS (4)
  - INFUSION SITE ERYTHEMA [None]
  - INFUSION SITE RASH [None]
  - INFUSION SITE REACTION [None]
  - VEIN DISORDER [None]
